FAERS Safety Report 5897214-0 (Version None)
Quarter: 2008Q3

REPORT INFORMATION
  Report Type: 
  Country: None (occurrence: None)
  Receive Date: 20080923
  Receipt Date: 20080908
  Transmission Date: 20090109
  Serious: Yes (Death, Other)
  Sender: FDA-Public Use
  Company Number: KADN20080340

PATIENT
  Age: 19 Year
  Sex: Female

DRUGS (3)
  1. MORPHINE [Suspect]
     Dosage: 250 MG, ORAL
     Route: 048
     Dates: end: 20050101
  2. OXYCODONE HCL [Suspect]
     Dosage: ORAL
     Route: 048
     Dates: end: 20050101
  3. MARIJUANA [Suspect]
     Dosage: INHALATION
     Route: 055
     Dates: end: 20050101

REACTIONS (2)
  - DRUG ABUSE [None]
  - OVERDOSE [None]
